FAERS Safety Report 24791484 (Version 1)
Quarter: 2024Q4

REPORT INFORMATION
  Report Type: Spontaneous
  Country: US (occurrence: US)
  Receive Date: 20241231
  Receipt Date: 20241231
  Transmission Date: 20250115
  Serious: No
  Sender: ROCHE
  Company Number: US-ROCHE-10000165870

PATIENT
  Age: 74 Year
  Sex: Female
  Weight: 49.9 kg

DRUGS (4)
  1. XOLAIR [Suspect]
     Active Substance: OMALIZUMAB
     Indication: Chronic spontaneous urticaria
     Dosage: ONGOING
     Route: 058
     Dates: start: 20240911
  2. EPIPEN [Concomitant]
     Active Substance: EPINEPHRINE
  3. PREDNISONE [Concomitant]
     Active Substance: PREDNISONE
  4. TIROSINT [Concomitant]
     Active Substance: LEVOTHYROXINE SODIUM

REACTIONS (12)
  - Urticaria [Recovered/Resolved]
  - Pain [Recovered/Resolved]
  - Chest discomfort [Recovered/Resolved]
  - Pharyngeal swelling [Recovered/Resolved]
  - Dysphagia [Recovered/Resolved]
  - Lip swelling [Recovered/Resolved]
  - Blood potassium decreased [Recovered/Resolved]
  - Blood magnesium decreased [Recovered/Resolved]
  - Ill-defined disorder [Recovered/Resolved]
  - Gastrointestinal disorder [Unknown]
  - Abdominal distension [Recovered/Resolved]
  - Product complaint [Unknown]

NARRATIVE: CASE EVENT DATE: 20241101
